FAERS Safety Report 24025501 (Version 1)
Quarter: 2024Q2

REPORT INFORMATION
  Report Type: Report from Study
  Country: CN (occurrence: CN)
  Receive Date: 20240628
  Receipt Date: 20240628
  Transmission Date: 20240716
  Serious: No
  Sender: FDA-Public Use
  Company Number: CN-ROCHE-3301101

PATIENT
  Age: 51 Year
  Sex: Male
  Weight: 60.0 kg

DRUGS (2)
  1. ALECENSA [Suspect]
     Active Substance: ALECTINIB HYDROCHLORIDE
     Indication: Lung neoplasm malignant
     Route: 048
     Dates: start: 20200117
  2. LEVAMLODIPINE MALEATE [Concomitant]
     Active Substance: LEVAMLODIPINE MALEATE
     Indication: Hypertension

REACTIONS (5)
  - Cognitive disorder [Not Recovered/Not Resolved]
  - Blood pressure decreased [Recovering/Resolving]
  - Abdominal pain upper [Recovering/Resolving]
  - Skin plaque [Recovering/Resolving]
  - Photosensitivity reaction [Not Recovered/Not Resolved]

NARRATIVE: CASE EVENT DATE: 20220901
